FAERS Safety Report 7759540-X (Version None)
Quarter: 2011Q3

REPORT INFORMATION
  Report Type: 
  Country: None (occurrence: None)
  Receive Date: 20110915
  Receipt Date: 20110830
  Transmission Date: 20111222
  Serious: Yes (Hospitalization)
  Sender: FDA-Public Use
  Company Number: 1000023502

PATIENT
  Age: 83 Year
  Sex: Female

DRUGS (7)
  1. FUROSEMIDE [Suspect]
     Dosage: (20), ORAL
     Route: 048
  2. ASPIRIN [Suspect]
     Dosage: (20), ORAL
     Route: 048
  3. NOVOMIX (BIPHASIC INSULIN ASPART) (BIPHASIC INSULIN ASPART) [Concomitant]
  4. TRIMETAZIDINE (TRIMETAZIDINE) [Suspect]
     Dosage: (20), ORAL
     Route: 048
  5. NEBIVOLOL HCL [Suspect]
     Dosage: ORAL
     Route: 048
  6. PRAVASTATIN [Suspect]
     Dosage: (20), ORAL
  7. NAFTIDROFURYL (NAFTIDROFURYL) [Suspect]
     Dosage: (200), ORAL
     Route: 048

REACTIONS (2)
  - CHEST PAIN [None]
  - OESOPHAGEAL ULCER [None]
